FAERS Safety Report 14613607 (Version 5)
Quarter: 2019Q2

REPORT INFORMATION
  Report Type: Spontaneous
  Country: SE (occurrence: SE)
  Receive Date: 20180308
  Receipt Date: 20190423
  Transmission Date: 20190711
  Serious: Yes (Other)
  Sender: FDA-Public Use
  Company Number: PHHY2018SE010272

PATIENT
  Age: 67 Year
  Sex: Female
  Weight: 71 kg

DRUGS (8)
  1. METOPROLOL SANDOZ [Suspect]
     Active Substance: METOPROLOL
     Dosage: 25 MG, QD
     Route: 065
     Dates: start: 20180202
  2. ELIQUIS [Suspect]
     Active Substance: APIXABAN
     Indication: ATRIAL FIBRILLATION
     Dosage: 5 MG, BID
     Route: 048
     Dates: start: 20170923, end: 20180202
  3. MULTAQ [Suspect]
     Active Substance: DRONEDARONE
     Indication: PRODUCT USED FOR UNKNOWN INDICATION
     Dosage: UNK
     Route: 065
     Dates: start: 20171215, end: 20171229
  4. METOPROLOL SANDOZ [Suspect]
     Active Substance: METOPROLOL
     Indication: PRODUCT USED FOR UNKNOWN INDICATION
     Dosage: 25 MG, QD
     Route: 065
     Dates: start: 20170922, end: 20171214
  5. ELIQUIS [Suspect]
     Active Substance: APIXABAN
     Indication: CEREBROVASCULAR ACCIDENT PROPHYLAXIS
  6. ELIQUIS [Suspect]
     Active Substance: APIXABAN
     Indication: CEREBROVASCULAR ACCIDENT PROPHYLAXIS
  7. ATORVASTATIN CALCIUM. [Suspect]
     Active Substance: ATORVASTATIN CALCIUM
     Indication: PRODUCT USED FOR UNKNOWN INDICATION
     Dosage: UNK
     Route: 065
  8. BUPRENORPHINE SANDOZ [Suspect]
     Active Substance: BUPRENORPHINE
     Indication: PRODUCT USED FOR UNKNOWN INDICATION
     Dosage: 15 UG, UNK
     Route: 065
     Dates: start: 20171115

REACTIONS (13)
  - Subchondral insufficiency fracture [Unknown]
  - Fatigue [Unknown]
  - Meniscus injury [Unknown]
  - Back pain [Unknown]
  - General physical health deterioration [Unknown]
  - No adverse event [Unknown]
  - Arthralgia [Unknown]
  - Osteoarthritis [Unknown]
  - Arthritis [Unknown]
  - Rash pruritic [Unknown]
  - Synovial cyst [Unknown]
  - Discomfort [Unknown]
  - Nausea [Unknown]

NARRATIVE: CASE EVENT DATE: 20171005
